FAERS Safety Report 12864583 (Version 1)
Quarter: 2016Q4

REPORT INFORMATION
  Report Type: Spontaneous
  Country: US (occurrence: US)
  Receive Date: 20161020
  Receipt Date: 20161020
  Transmission Date: 20170207
  Serious: No
  Sender: FDA-Public Use
  Company Number: US-B.I. PHARMACEUTICALS,INC./RIDGEFIELD-2016-BI-063871

PATIENT
  Age: 60 Year
  Sex: Male

DRUGS (4)
  1. JARDIANCE [Suspect]
     Active Substance: EMPAGLIFLOZIN
     Indication: TYPE 2 DIABETES MELLITUS
     Route: 048
     Dates: start: 20160907
  2. METFORMIN [Concomitant]
     Active Substance: METFORMIN HYDROCHLORIDE
     Indication: PRODUCT USED FOR UNKNOWN INDICATION
     Dosage: ONE TAB TWICE DAY;
     Route: 048
     Dates: start: 2014
  3. METFORMIN [Concomitant]
     Active Substance: METFORMIN HYDROCHLORIDE
     Dosage: 1000 MG IN MORNING 500 MG AT NIGHT;
     Route: 048
  4. METFORMIN [Concomitant]
     Active Substance: METFORMIN HYDROCHLORIDE
     Dosage: ONE TAB TWICE A DAY;  FORM STRENGTH: 500 MG
     Route: 048

REACTIONS (8)
  - Water pollution [Not Recovered/Not Resolved]
  - Pre-existing condition improved [Unknown]
  - Memory impairment [Not Recovered/Not Resolved]
  - Chromaturia [Not Recovered/Not Resolved]
  - Polyuria [Not Recovered/Not Resolved]
  - Drug effect increased [Unknown]
  - Nausea [Recovered/Resolved]
  - Urine odour abnormal [Not Recovered/Not Resolved]

NARRATIVE: CASE EVENT DATE: 201609
